FAERS Safety Report 9458234 (Version 1)
Quarter: 2013Q3

REPORT INFORMATION
  Report Type: Spontaneous
  Country: US (occurrence: None)
  Receive Date: 20130813
  Receipt Date: 20130813
  Transmission Date: 20140515
  Serious: Yes (Disabling)
  Sender: FDA-Public Use
  Company Number: None

PATIENT
  Age: 52 Year
  Sex: Male
  Weight: 89.81 kg

DRUGS (1)
  1. INTERFERON [Suspect]
     Indication: MELANOMA RECURRENT
     Dosage: 1 YRS -- INTO THE MUSCLE
     Route: 030
     Dates: start: 20080701, end: 20090731

REACTIONS (8)
  - Malaise [None]
  - Major depression [None]
  - Paranoia [None]
  - Loss of libido [None]
  - Amnesia [None]
  - Thinking abnormal [None]
  - Myalgia [None]
  - Bone pain [None]
